FAERS Safety Report 8158937-6 (Version None)
Quarter: 2012Q1

REPORT INFORMATION
  Report Type: 
  Country: None (occurrence: None)
  Receive Date: 20120223
  Receipt Date: 20120212
  Transmission Date: 20120608
  Serious: Yes (Hospitalization, Other)
  Sender: FDA-Public Use
  Company Number: US-PERRIGO-12US001290

PATIENT
  Sex: Male
  Weight: 77.098 kg

DRUGS (2)
  1. NAPROXEN SODIUM AND PSEUDOEPHEDRINE HYDROCHLORIDE [Suspect]
     Indication: PRODUCT USED FOR UNKNOWN INDICATION
     Dosage: 3 CAPLETS ONCE DAILY
     Route: 048
     Dates: start: 20110301, end: 20110301
  2. CLARITIN [Concomitant]
     Indication: PRODUCT USED FOR UNKNOWN INDICATION
     Dosage: UNK
     Route: 065

REACTIONS (9)
  - FEELING ABNORMAL [None]
  - HEART INJURY [None]
  - ARRHYTHMIA [None]
  - CHEST PAIN [None]
  - CHEST DISCOMFORT [None]
  - MYOCARDIAL INFARCTION [None]
  - ARTERIOSPASM CORONARY [None]
  - DYSPHAGIA [None]
  - ACCIDENTAL OVERDOSE [None]
